FAERS Safety Report 9516479 (Version 1)
Quarter: 2013Q3

REPORT INFORMATION
  Report Type: Spontaneous
  Country: BR (occurrence: BR)
  Receive Date: 20130911
  Receipt Date: 20130911
  Transmission Date: 20140515
  Serious: Yes (Hospitalization)
  Sender: FDA-Public Use
  Company Number: BR-009507513-1309BRA003658

PATIENT
  Age: 29 Year
  Sex: Female
  Weight: 56.2 kg

DRUGS (2)
  1. MERCILON [Suspect]
     Indication: CONTRACEPTION
     Dosage: 1 TABLET, QD
     Route: 048
     Dates: start: 2004, end: 2006
  2. MERCILON [Suspect]
     Dosage: 1 DF, QD
     Route: 048
     Dates: start: 2010

REACTIONS (8)
  - Gestational hypertension [Recovered/Resolved]
  - Gestational diabetes [Recovered/Resolved]
  - Postpartum haemorrhage [Recovered/Resolved]
  - Uterine injury [Recovered/Resolved]
  - Menstrual disorder [Not Recovered/Not Resolved]
  - Menorrhagia [Recovered/Resolved]
  - Metrorrhagia [Not Recovered/Not Resolved]
  - Maternal exposure before pregnancy [Unknown]
